FAERS Safety Report 12573284 (Version 2)
Quarter: 2017Q1

REPORT INFORMATION
  Report Type: Spontaneous
  Country: PE (occurrence: PE)
  Receive Date: 20160720
  Receipt Date: 20170320
  Transmission Date: 20170428
  Serious: Yes (Other)
  Sender: FDA-Public Use
  Company Number: PE-PFIZER INC-2016339870

PATIENT
  Age: 88 Year
  Sex: Female

DRUGS (1)
  1. XALATAN [Suspect]
     Active Substance: LATANOPROST
     Indication: GLAUCOMA
     Dosage: 1 GTT IN EACH EYE , DAILY
     Route: 047
     Dates: end: 20170312

REACTIONS (4)
  - Thyroid disorder [Unknown]
  - Cataract [Unknown]
  - Malaise [Unknown]
  - Cardiac disorder [Unknown]
